FAERS Safety Report 4948550-3 (Version None)
Quarter: 2006Q1

REPORT INFORMATION
  Report Type: 
  Country: None (occurrence: None)
  Receive Date: 20060313
  Receipt Date: 20060302
  Transmission Date: 20060701
  Serious: Yes (Other)
  Sender: FDA-Public Use
  Company Number: 2006030558

PATIENT
  Age: 60 Year

DRUGS (13)
  1. FRAGMIN [Suspect]
     Indication: THROMBOSIS PROPHYLAXIS
     Dosage: SEE IMAGE
     Dates: start: 20050622, end: 20050719
  2. FRAGMIN [Suspect]
     Indication: THROMBOSIS PROPHYLAXIS
     Dosage: SEE IMAGE
     Dates: start: 20050720, end: 20051113
  3. FRAGMIN [Suspect]
     Indication: THROMBOSIS PROPHYLAXIS
     Dosage: SEE IMAGE
     Dates: start: 20051114, end: 20051120
  4. FRAGMIN [Suspect]
     Indication: THROMBOSIS PROPHYLAXIS
     Dosage: SEE IMAGE
     Dates: start: 20051121, end: 20060126
  5. DIOVAN [Concomitant]
  6. HEPARIN [Concomitant]
  7. ENALAPRIL MALEATE [Concomitant]
  8. LASIX [Concomitant]
  9. NORVASC [Concomitant]
  10. CALTAN (CALCIUM CARBONATE) [Concomitant]
  11. RENAGEL [Concomitant]
  12. CALCIUM POLYSTYRENE SULFONATE (CALCIUM POLYSTYRENE SULFONATE) [Concomitant]
  13. EPOGEN [Concomitant]

REACTIONS (3)
  - HAEMODIALYSIS-INDUCED SYMPTOM [None]
  - RETINAL HAEMORRHAGE [None]
  - THROMBOSIS IN DEVICE [None]
